FAERS Safety Report 10620499 (Version 1)
Quarter: 2014Q4

REPORT INFORMATION
  Report Type: Spontaneous
  Country: SE (occurrence: SE)
  Receive Date: 20141202
  Receipt Date: 20141202
  Transmission Date: 20150529
  Serious: Yes (Life-Threatening, Other)
  Sender: FDA-Public Use
  Company Number: SE-BAYER-2014-174729

PATIENT
  Sex: Female

DRUGS (1)
  1. MIRENA [Suspect]
     Active Substance: LEVONORGESTREL
     Indication: GENITAL HAEMORRHAGE
     Dosage: UNK
     Route: 015
     Dates: start: 201404

REACTIONS (8)
  - Uterine leiomyoma [None]
  - Suicide attempt [None]
  - Mood swings [None]
  - Embedded device [None]
  - Device dislocation [None]
  - Mental disorder [None]
  - Device dislocation [None]
  - Conversion disorder [None]

NARRATIVE: CASE EVENT DATE: 2014
